FAERS Safety Report 10019379 (Version 3)
Quarter: 2014Q3

REPORT INFORMATION
  Report Type: Spontaneous
  Country: US (occurrence: US)
  Receive Date: 20140318
  Receipt Date: 20140811
  Transmission Date: 20150326
  Serious: Yes (Hospitalization)
  Sender: FDA-Public Use
  Company Number: US-BAYER-2014-040112

PATIENT
  Age: 24 Year
  Sex: Female
  Weight: 72.56 kg

DRUGS (4)
  1. ASPIRIN. [Concomitant]
     Active Substance: ASPIRIN
     Dosage: UNK
     Dates: start: 20071119
  2. YAZ [Suspect]
     Active Substance: DROSPIRENONE\ETHINYL ESTRADIOL
     Dosage: UNK
     Route: 048
     Dates: start: 200702
  3. YASMIN [Suspect]
     Active Substance: DROSPIRENONE\ETHINYL ESTRADIOL
     Dosage: UNK
     Dates: start: 200702
  4. VICKS [CHLOROFORM,GUAIFENESIN,PENTOXYVERINE,SODIUM BENZOATE] [Concomitant]
     Dosage: UNK
     Dates: start: 20071119

REACTIONS (8)
  - Pulmonary embolism [None]
  - General physical health deterioration [None]
  - Deep vein thrombosis [None]
  - Anxiety [None]
  - Emotional distress [None]
  - Injury [None]
  - Fear of disease [None]
  - Pain [None]

NARRATIVE: CASE EVENT DATE: 200711
